FAERS Safety Report 6321900-1 (Version None)
Quarter: 2009Q3

REPORT INFORMATION
  Report Type: 
  Country: None (occurrence: None)
  Receive Date: 20090821
  Receipt Date: 20090821
  Transmission Date: 20100115
  Serious: Yes (Life-Threatening, Hospitalization, Disabling, Other)
  Sender: FDA-Public Use
  Company Number: None

PATIENT
  Age: 43 Year
  Sex: Male
  Weight: 109 kg

DRUGS (2)
  1. HYDROMORPHONE HCL [Suspect]
     Indication: PAIN
     Dosage: 4MG  X 8 HR MOUTH
     Route: 048
     Dates: start: 20070101, end: 20090301
  2. BUTORPHANOL TARTRATE [Suspect]
     Indication: PAIN
     Dosage: 2 SPRAYS X 6 HR NOSE
     Route: 045
     Dates: start: 20070101, end: 20090301

REACTIONS (2)
  - DRUG WITHDRAWAL SYNDROME [None]
  - UNEVALUABLE EVENT [None]
